FAERS Safety Report 16783495 (Version 1)
Quarter: 2019Q3

REPORT INFORMATION
  Report Type: Other
  Country: DE (occurrence: DE)
  Receive Date: 20190907
  Receipt Date: 20190907
  Transmission Date: 20191005
  Serious: Yes (Hospitalization, Other)
  Sender: FDA-Public Use
  Company Number: DE-MACLEODS PHARMACEUTICALS US LTD-MAC2019022826

PATIENT

DRUGS (14)
  1. PROPOFOL. [Suspect]
     Active Substance: PROPOFOL
     Indication: PRODUCT USED FOR UNKNOWN INDICATION
     Dosage: UNK
     Route: 065
  2. CLEMIZOLE PENICILLIN [Suspect]
     Active Substance: CLEMIZOLE PENICILLIN
     Indication: PRODUCT USED FOR UNKNOWN INDICATION
     Dosage: UNK
     Route: 065
  3. HEPARIN [Concomitant]
     Active Substance: HEPARIN SODIUM
     Indication: LYMPHADENECTOMY
     Dosage: UNK
     Route: 005
  4. OMEGA 3 [Concomitant]
     Active Substance: OMEGA-3 FATTY ACIDS
     Indication: PRODUCT USED FOR UNKNOWN INDICATION
     Dosage: UNK
     Route: 065
  5. DICLOFENAC [Suspect]
     Active Substance: DICLOFENAC
     Indication: PRODUCT USED FOR UNKNOWN INDICATION
     Dosage: UNK
     Route: 065
  6. CLARITHROMYCIN. [Suspect]
     Active Substance: CLARITHROMYCIN
     Indication: PRODUCT USED FOR UNKNOWN INDICATION
     Dosage: UNK
     Route: 065
  7. HYDROCHLOROTHIAZIDE. [Concomitant]
     Active Substance: HYDROCHLOROTHIAZIDE
     Indication: PRODUCT USED FOR UNKNOWN INDICATION
     Dosage: UNK, 125 OT
     Route: 048
  8. VALSARTAN. [Suspect]
     Active Substance: VALSARTAN
     Indication: HYPERTENSION
     Dosage: 92.5 MILLIGRAM, IN THE MORNINGS
     Route: 048
     Dates: start: 2006
  9. IODINE. [Concomitant]
     Active Substance: IODINE
     Indication: GOITRE
     Dosage: 200 MILLIGRAM, QD, SINCE YEARS
     Route: 048
     Dates: start: 2000, end: 2000
  10. VALSARTAN 1A PHARMA [Suspect]
     Active Substance: VALSARTAN
     Indication: PRODUCT USED FOR UNKNOWN INDICATION
     Dosage: 80 MILLIGRAM, IN THE MORNINGS
     Route: 065
     Dates: start: 20141202, end: 201808
  11. DOXYCYCLINE. [Suspect]
     Active Substance: DOXYCYCLINE
     Indication: PRODUCT USED FOR UNKNOWN INDICATION
     Dosage: UNK
     Route: 065
  12. VALDOXAN [Concomitant]
     Active Substance: AGOMELATINE
     Indication: PRODUCT USED FOR UNKNOWN INDICATION
     Dosage: 25 MILLIGRAM, QD, MORNING
     Route: 065
     Dates: start: 20120116
  13. ZINC. [Concomitant]
     Active Substance: ZINC
     Indication: PRODUCT USED FOR UNKNOWN INDICATION
     Dosage: UNK
     Route: 065
  14. VOTUM [Concomitant]
     Indication: PRODUCT USED FOR UNKNOWN INDICATION
     Dosage: 0.5 DOSAGE FORM, QD, 10MG MORNING
     Route: 065
     Dates: start: 2005

REACTIONS (13)
  - Incontinence [Unknown]
  - Lipoedema [Unknown]
  - Endometrial cancer [Not Recovered/Not Resolved]
  - Lymphoedema [Unknown]
  - Micturition urgency [Unknown]
  - Sneezing [Unknown]
  - Vaginal haemorrhage [Not Recovered/Not Resolved]
  - Cough [Unknown]
  - Drug hypersensitivity [Unknown]
  - Osteoarthritis [Not Recovered/Not Resolved]
  - Procedural complication [Unknown]
  - Bladder spasm [Unknown]
  - Constipation [Unknown]

NARRATIVE: CASE EVENT DATE: 2017
